FAERS Safety Report 9805615 (Version 3)
Quarter: 2014Q1

REPORT INFORMATION
  Report Type: Spontaneous
  Country: US (occurrence: US)
  Receive Date: 20140109
  Receipt Date: 20140320
  Transmission Date: 20141002
  Serious: No
  Sender: FDA-Public Use
  Company Number: US-JNJFOC-20140100804

PATIENT
  Age: 52 Year
  Sex: Female
  Weight: 89.81 kg

DRUGS (5)
  1. STELARA [Suspect]
     Indication: PSORIASIS
     Dosage: SIX INJECTIONS AS OF 09-JAN-2014
     Route: 058
     Dates: start: 20121106
  2. STELARA [Suspect]
     Indication: PSORIASIS
     Dosage: SIX INJECTIONS AS OF 09-JAN-2014
     Route: 058
     Dates: start: 20121106
  3. ATENOLOL [Concomitant]
     Route: 048
     Dates: start: 2003
  4. ZYRTEC [Concomitant]
     Route: 048
     Dates: start: 2012
  5. PRILOSEC [Concomitant]
     Route: 065
     Dates: start: 201306

REACTIONS (1)
  - Tuberculin test positive [Recovered/Resolved]
